FAERS Safety Report 8622018-5 (Version None)
Quarter: 2012Q3

REPORT INFORMATION
  Report Type: 
  Country: None (occurrence: None)
  Receive Date: 20120823
  Receipt Date: 20120823
  Transmission Date: 20120928
  Serious: Yes (Other)
  Sender: FDA-Public Use
  Company Number: None

PATIENT
  Sex: Female
  Weight: 51.7101 kg

DRUGS (2)
  1. PROLIA [Suspect]
     Indication: OSTEOPOROSIS
     Dosage: 60 MG, 1 INJECTION
     Dates: start: 20110801
  2. PROLIA [Suspect]

REACTIONS (5)
  - MUSCLE RUPTURE [None]
  - ARTHRALGIA [None]
  - BALANCE DISORDER [None]
  - TENDERNESS [None]
  - INFLAMMATION [None]
